FAERS Safety Report 13537096 (Version 1)
Quarter: 2017Q2

REPORT INFORMATION
  Report Type: Spontaneous
  Country: US (occurrence: US)
  Receive Date: 20170511
  Receipt Date: 20170511
  Transmission Date: 20170830
  Serious: Yes (Other)
  Sender: FDA-Public Use
  Company Number: US-BRISTOL-MYERS SQUIBB COMPANY-BMS-2017-037934

PATIENT
  Sex: Female
  Weight: 63.39 kg

DRUGS (1)
  1. OPDIVO [Suspect]
     Active Substance: NIVOLUMAB
     Indication: NON-SMALL CELL LUNG CANCER
     Dosage: UNK
     Route: 042
     Dates: start: 201605

REACTIONS (9)
  - Osteomyelitis [Unknown]
  - Genital herpes [Unknown]
  - Stress [Unknown]
  - Weight increased [Unknown]
  - Skin exfoliation [Unknown]
  - Swelling [Unknown]
  - Flushing [Unknown]
  - Hypotension [Unknown]
  - Rash [Unknown]
